FAERS Safety Report 8536594-4 (Version None)
Quarter: 2012Q3

REPORT INFORMATION
  Report Type: 
  Country: None (occurrence: None)
  Receive Date: 20120712
  Receipt Date: 20120703
  Transmission Date: 20120928
  Serious: Yes (Other)
  Sender: FDA-Public Use
  Company Number: DSA_58303_2012

PATIENT
  Age: 46 Year
  Sex: Male

DRUGS (3)
  1. THERAPEUTIC RADIOPHARMACEUTICALS [Suspect]
     Indication: ADENOCARCINOMA
     Dosage: (4500 CGY)
  2. FLUOROURACIL [Suspect]
     Indication: ADENOCARCINOMA
     Dosage: (DF)
  3. LEUCOVORIN CALCIUM [Concomitant]

REACTIONS (4)
  - GASTRITIS [None]
  - MELAENA [None]
  - FATIGUE [None]
  - GASTROINTESTINAL HAEMORRHAGE [None]
